FAERS Safety Report 9015149 (Version 1)
Quarter: 2013Q1

REPORT INFORMATION
  Report Type: Spontaneous
  Country: US (occurrence: US)
  Receive Date: 20130116
  Receipt Date: 20130116
  Transmission Date: 20140127
  Serious: Yes (Other)
  Sender: FDA-Public Use
  Company Number: US-009507513-0909USA03450

PATIENT
  Age: 36 Month
  Sex: Male
  Weight: 19.5 kg

DRUGS (2)
  1. SINGULAIR [Suspect]
     Indication: MULTIPLE ALLERGIES
     Dosage: 1 DF, QD
     Route: 048
     Dates: start: 20081104, end: 20090314
  2. SINGULAIR [Suspect]
     Indication: ASTHMA

REACTIONS (5)
  - Affective disorder [Unknown]
  - Anger [Unknown]
  - Screaming [Unknown]
  - Aggression [Unknown]
  - Agitation [Unknown]
